FAERS Safety Report 14629594 (Version 1)
Quarter: 2018Q1

REPORT INFORMATION
  Report Type: Spontaneous
  Country: FR (occurrence: FR)
  Receive Date: 20180313
  Receipt Date: 20180313
  Transmission Date: 20180509
  Serious: Yes (Other)
  Sender: FDA-Public Use
  Company Number: FR-MERCK KGAA-2043584

PATIENT
  Age: 70 Year
  Sex: Female

DRUGS (2)
  1. NOVOTHYROX [Suspect]
     Active Substance: LEVOTHYROXINE SODIUM
     Dates: start: 20170530, end: 20171004
  2. NOVOTHYROX [Suspect]
     Active Substance: LEVOTHYROXINE SODIUM
     Indication: HYPOTHYROIDISM
     Dates: start: 20170328

REACTIONS (22)
  - Tachycardia [Recovering/Resolving]
  - Dyspnoea exertional [Recovering/Resolving]
  - Decreased activity [Recovering/Resolving]
  - Hyperhidrosis [Recovering/Resolving]
  - Syncope [Recovering/Resolving]
  - Alopecia [Recovering/Resolving]
  - Abdominal pain [Recovering/Resolving]
  - Weight increased [Recovering/Resolving]
  - Oedema peripheral [Recovering/Resolving]
  - Fatigue [Recovering/Resolving]
  - Decreased interest [Recovering/Resolving]
  - Mood swings [Recovering/Resolving]
  - Social avoidant behaviour [Recovering/Resolving]
  - Insomnia [Recovering/Resolving]
  - Extrasystoles [Recovering/Resolving]
  - Diarrhoea [Recovering/Resolving]
  - Limb discomfort [Recovering/Resolving]
  - Malaise [Recovering/Resolving]
  - Depression [Recovering/Resolving]
  - Loss of personal independence in daily activities [Recovering/Resolving]
  - Migraine [Recovering/Resolving]
  - Disturbance in attention [Recovering/Resolving]

NARRATIVE: CASE EVENT DATE: 2017
